FAERS Safety Report 6286553-X (Version None)
Quarter: 2009Q3

REPORT INFORMATION
  Report Type: 
  Country: None (occurrence: None)
  Receive Date: 20090728
  Receipt Date: 20090722
  Transmission Date: 20100115
  Serious: Yes (Hospitalization)
  Sender: FDA-Public Use
  Company Number: US-BRISTOL-MYERS SQUIBB COMPANY-14715361

PATIENT

DRUGS (1)
  1. DEFINITY [Suspect]

REACTIONS (2)
  - SUPRAVENTRICULAR TACHYCARDIA [None]
  - SYNCOPE [None]
